FAERS Safety Report 5781474-0 (Version None)
Quarter: 2008Q2

REPORT INFORMATION
  Report Type: 
  Country: None (occurrence: None)
  Receive Date: 20080623
  Receipt Date: 20070608
  Transmission Date: 20081010
  Serious: No
  Sender: FDA-Public Use
  Company Number: US-ASTRAZENECA-2007UW13885

PATIENT
  Age: 52 Year
  Sex: Female
  Weight: 87.5 kg

DRUGS (7)
  1. ENTOCORT EC [Suspect]
     Indication: CROHN'S DISEASE
     Route: 048
     Dates: start: 20070515
  2. LEVOTHYROXINE SODIUM [Concomitant]
  3. OMEPRAZOLE [Concomitant]
  4. OSCAL [Concomitant]
  5. LISINOPRIL [Concomitant]
  6. ACTONEL [Concomitant]
  7. REMICADE [Concomitant]

REACTIONS (1)
  - FEELING COLD [None]
